FAERS Safety Report 5511481-4 (Version None)
Quarter: 2007Q4

REPORT INFORMATION
  Report Type: 
  Country: None (occurrence: None)
  Receive Date: 20071109
  Receipt Date: 20071102
  Transmission Date: 20080405
  Serious: Yes (Other)
  Sender: FDA-Public Use
  Company Number: A0686175A

PATIENT
  Age: 53 Year
  Sex: Male
  Weight: 95.5 kg

DRUGS (4)
  1. AVANDIA [Suspect]
     Indication: DIABETES MELLITUS
     Dosage: 8MG PER DAY
     Dates: start: 20060925, end: 20070601
  2. METFORMIN HCL [Concomitant]
     Dosage: 2000MG PER DAY
     Dates: start: 20030620
  3. GLYBURIDE [Concomitant]
     Dosage: 20G PER DAY
     Dates: start: 20030520
  4. VASOTEC [Concomitant]
     Dosage: 20MG PER DAY
     Dates: start: 20030909

REACTIONS (3)
  - EYE PAIN [None]
  - INTRAOCULAR PRESSURE INCREASED [None]
  - VISUAL ACUITY REDUCED [None]
